FAERS Safety Report 24265264 (Version 1)
Quarter: 2024Q3

REPORT INFORMATION
  Report Type: Spontaneous
  Country: PT (occurrence: PT)
  Receive Date: 20240829
  Receipt Date: 20240829
  Transmission Date: 20241017
  Serious: Yes (Other)
  Sender: TEVA
  Company Number: None

PATIENT
  Age: 19 Year
  Sex: Male

DRUGS (4)
  1. RISPERIDONE [Suspect]
     Active Substance: RISPERIDONE
     Indication: Product used for unknown indication
     Dosage: 1 COMP PER DAY, RISPERIDONE RATIOPHARM
     Route: 048
     Dates: start: 20240719, end: 20240722
  2. LISDEXAMFETAMINE DIMESYLATE [Concomitant]
     Active Substance: LISDEXAMFETAMINE DIMESYLATE
     Indication: Product used for unknown indication
     Route: 048
  3. THEOPHYLLINE [Concomitant]
     Active Substance: THEOPHYLLINE
     Indication: Product used for unknown indication
     Route: 048
  4. BISOPROLOL FUMARATE [Concomitant]
     Active Substance: BISOPROLOL FUMARATE
     Indication: Product used for unknown indication
     Dosage: CONCOR IC
     Route: 048

REACTIONS (8)
  - Urticaria [Recovered/Resolved]
  - Extrasystoles [Recovered/Resolved]
  - Laryngeal discomfort [Recovered/Resolved]
  - Tachycardia [Recovered/Resolved]
  - Rash [Recovered/Resolved]
  - Feeling hot [Recovered/Resolved]
  - Headache [Recovered/Resolved]
  - Nausea [Recovered/Resolved]

NARRATIVE: CASE EVENT DATE: 20240720
